FAERS Safety Report 14695967 (Version 1)
Quarter: 2018Q1

REPORT INFORMATION
  Report Type: Spontaneous
  Country: US (occurrence: US)
  Receive Date: 20180329
  Receipt Date: 20180329
  Transmission Date: 20180509
  Serious: No
  Sender: FDA-Public Use
  Company Number: US-LUNDBECK-DKLU2045852

PATIENT
  Age: 72 Year
  Sex: Female

DRUGS (1)
  1. NORTHERA [Suspect]
     Active Substance: DROXIDOPA
     Indication: PARKINSON^S DISEASE
     Dosage: 48 HOUR TITRATION AS DIRECTED
     Route: 048
     Dates: start: 20180212

REACTIONS (3)
  - Nail discolouration [Unknown]
  - Erythema [Unknown]
  - Nausea [Unknown]

NARRATIVE: CASE EVENT DATE: 20180315
